FAERS Safety Report 5350454-1 (Version None)
Quarter: 2007Q2

REPORT INFORMATION
  Report Type: 
  Country: None (occurrence: None)
  Receive Date: 20070608
  Receipt Date: 20070531
  Transmission Date: 20071010
  Serious: Yes (Hospitalization, Disabling, Other)
  Sender: FDA-Public Use
  Company Number: PHNR2007AU00537

PATIENT
  Age: 47 Year
  Sex: Female

DRUGS (6)
  1. ZOMETA [Suspect]
     Indication: MULTIPLE MYELOMA
     Dosage: 4 MG, Q3MO
     Dates: start: 20040101, end: 20061025
  2. AREDIA [Suspect]
     Indication: MULTIPLE MYELOMA
     Dates: start: 19980101, end: 20040101
  3. MELPHALAN [Concomitant]
     Indication: TRANSPLANT
  4. VINCRISTINE + ADRIAMYCIN + DEXAMETHASONE [Concomitant]
     Indication: MULTIPLE MYELOMA
  5. THALIDOMIDE [Concomitant]
     Dates: end: 20030101
  6. STEROIDS NOS [Concomitant]
     Dates: start: 19980101, end: 19980101

REACTIONS (10)
  - BONE DISORDER [None]
  - BONE LESION [None]
  - DYSAESTHESIA [None]
  - IMPAIRED HEALING [None]
  - OEDEMA MOUTH [None]
  - ORAL SURGERY [None]
  - OSTEONECROSIS [None]
  - PAIN IN JAW [None]
  - SOFT TISSUE INFECTION [None]
  - TOOTH EXTRACTION [None]
